FAERS Safety Report 6239552-8 (Version None)
Quarter: 2009Q2

REPORT INFORMATION
  Report Type: 
  Country: None (occurrence: None)
  Receive Date: 20090618
  Receipt Date: 20090618
  Transmission Date: 20091009
  Serious: No
  Sender: FDA-Public Use
  Company Number: None

PATIENT
  Age: 47 Year
  Sex: Male
  Weight: 80.7403 kg

DRUGS (1)
  1. ZICAM COLD SPRAY DON'T REMEMBER ZICAM [Suspect]
     Indication: NASOPHARYNGITIS
     Dosage: AS INSTRUCTED
     Dates: start: 20000101, end: 20000401

REACTIONS (10)
  - AGEUSIA [None]
  - AMNESIA [None]
  - ANOREXIA [None]
  - ANOSMIA [None]
  - DYSGEUSIA [None]
  - MENTAL DISORDER [None]
  - PAROSMIA [None]
  - RHINALGIA [None]
  - SINUSITIS [None]
  - SUSPICIOUSNESS [None]
